FAERS Safety Report 15659123 (Version 2)
Quarter: 2019Q1

REPORT INFORMATION
  Report Type: Spontaneous
  Country: IT (occurrence: IT)
  Receive Date: 20181127
  Receipt Date: 20190204
  Transmission Date: 20190417
  Serious: Yes (Death, Hospitalization, Other)
  Sender: FDA-Public Use
  Company Number: IT-SA-2018SA321865

PATIENT
  Age: 76 Year
  Sex: Female

DRUGS (4)
  1. LEVODOPA-CARBIDOPA [Suspect]
     Active Substance: CARBIDOPA\LEVODOPA
     Indication: DYSKINESIA
     Dosage: 1200 MG, QD
  2. ZOLPIDEM TARTRATE. [Suspect]
     Active Substance: ZOLPIDEM TARTRATE
     Dosage: 10 MG, QD
     Route: 065
  3. PRAMIPEXOLE HYDROCHLORIDE [Suspect]
     Active Substance: PRAMIPEXOLE DIHYDROCHLORIDE
     Indication: PARKINSON^S DISEASE
     Dosage: 1.05 MG, QD
     Route: 065
  4. VENLAFAXINE HYDROCHLORIDE. [Suspect]
     Active Substance: VENLAFAXINE HYDROCHLORIDE
     Dosage: 75 MG, QD
     Route: 065

REACTIONS (13)
  - Parkinsonism hyperpyrexia syndrome [Fatal]
  - Acute pulmonary oedema [Fatal]
  - Respiratory distress [Unknown]
  - Leukocytosis [Unknown]
  - Hallucination, visual [Recovered/Resolved]
  - Blood creatine phosphokinase increased [Unknown]
  - Pyrexia [Unknown]
  - Stupor [Unknown]
  - Dehydration [Unknown]
  - Hypernatraemia [Unknown]
  - Dyskinesia [Unknown]
  - Tachycardia [Unknown]
  - Orthostatic hypotension [Recovered/Resolved]

NARRATIVE: CASE EVENT DATE: 201607
